FAERS Safety Report 6823555-6 (Version None)
Quarter: 2010Q3

REPORT INFORMATION
  Report Type: 
  Country: None (occurrence: None)
  Receive Date: 20100708
  Receipt Date: 20100630
  Transmission Date: 20110219
  Serious: Yes (Other)
  Sender: FDA-Public Use
  Company Number: CA-BAXTER-2010BH017751

PATIENT
  Sex: Male

DRUGS (1)
  1. FEIBA [Suspect]
     Indication: PRODUCT USED FOR UNKNOWN INDICATION
     Route: 065

REACTIONS (2)
  - MYOCARDIAL INFARCTION [None]
  - THERAPEUTIC PRODUCT INEFFECTIVE [None]
